FAERS Safety Report 15472213 (Version 1)
Quarter: 2018Q4

REPORT INFORMATION
  Report Type: Spontaneous
  Country: None (occurrence: US)
  Receive Date: 20181008
  Receipt Date: 20181008
  Transmission Date: 20190205
  Serious: No
  Sender: FDA-Public Use
  Company Number: US-BIO PRODUCTS LABORATORY LTD-2055762

PATIENT
  Age: 71 Year
  Sex: Male

DRUGS (3)
  1. MERTAZAPINE [Concomitant]
     Active Substance: MIRTAZAPINE
  2. GAMMAPLEX [Suspect]
     Active Substance: HUMAN IMMUNOGLOBULIN G
     Indication: MULTIFOCAL MOTOR NEUROPATHY
     Route: 042
  3. ALBUTEROL. [Concomitant]
     Active Substance: ALBUTEROL

REACTIONS (2)
  - Off label use [Recovering/Resolving]
  - Rash pruritic [Recovering/Resolving]
